FAERS Safety Report 18525824 (Version 1)
Quarter: 2020Q4

REPORT INFORMATION
  Report Type: Spontaneous
  Country: US (occurrence: US)
  Receive Date: 20201119
  Receipt Date: 20201119
  Transmission Date: 20210114
  Serious: Yes (Other)
  Sender: FDA-Public Use
  Company Number: US-SUN PHARMACEUTICAL INDUSTRIES LTD-2020R1-268259

PATIENT
  Age: 28 Year
  Sex: Female

DRUGS (3)
  1. DUPILUMAB [Concomitant]
     Active Substance: DUPILUMAB
     Indication: DERMATITIS ATOPIC
     Dosage: 600 MILLIGRAM
     Route: 065
  2. DUPILUMAB [Concomitant]
     Active Substance: DUPILUMAB
     Dosage: 300 MILLIGRAM, UNK (EVERY OTHER WEEK)
     Route: 065
  3. PREDNISONE. [Suspect]
     Active Substance: PREDNISONE
     Indication: DERMATITIS ATOPIC
     Dosage: 40 MILLIGRAM, DAILY
     Route: 065

REACTIONS (3)
  - Live birth [Unknown]
  - Gestational diabetes [Unknown]
  - Exposure during pregnancy [Unknown]
